FAERS Safety Report 4630849-1 (Version None)
Quarter: 2005Q2

REPORT INFORMATION
  Report Type: 
  Country: None (occurrence: None)
  Receive Date: 20050406
  Receipt Date: 20050329
  Transmission Date: 20051028
  Serious: No
  Sender: FDA-Public Use
  Company Number: TPA2005A00362

PATIENT
  Age: 50 Year
  Sex: Female
  Weight: 74.8435 kg

DRUGS (2)
  1. ACTOS [Suspect]
     Indication: DIABETES MELLITUS NON-INSULIN-DEPENDENT
     Dosage: 45 MG, 1 IN1 D, PER ORAL
     Route: 048
     Dates: start: 20050329
  2. AMARYL [Concomitant]

REACTIONS (1)
  - MEDICATION ERROR [None]
